FAERS Safety Report 25229476 (Version 1)
Quarter: 2025Q2

REPORT INFORMATION
  Report Type: Spontaneous
  Country: US (occurrence: None)
  Receive Date: 20250422
  Receipt Date: 20250422
  Transmission Date: 20250717
  Serious: Yes (Hospitalization)
  Sender: FDA-CTU
  Company Number: None

PATIENT
  Sex: Female

DRUGS (2)
  1. TRIKAFTA [Suspect]
     Active Substance: ELEXACAFTOR\IVACAFTOR\TEZACAFTOR
     Indication: Cystic fibrosis
     Dosage: FREQ: TAKE 2 TABLETS BY MOUTH EVERY MORNING AND TAKE 1 TABLET EVERY EVENING. TAKE EACH DOSE WITH FAT CONTAINING FOOD 12 HOURS APART.
     Route: 048
     Dates: start: 20191211
  2. FLUARIX NOS [Concomitant]
     Active Substance: INFLUENZA VIRUS VACCINE

REACTIONS (3)
  - Respiratory failure [None]
  - Sleep disorder [None]
  - Therapy interrupted [None]
